FAERS Safety Report 23545101 (Version 12)
Quarter: 2024Q4

REPORT INFORMATION
  Report Type: Spontaneous
  Country: US (occurrence: US)
  Receive Date: 20240220
  Receipt Date: 20241209
  Transmission Date: 20250115
  Serious: No
  Sender: PFIZER
  Company Number: US-PFIZER INC-PV202400022405

PATIENT
  Age: 17 Year
  Sex: Male

DRUGS (1)
  1. LITFULO [Suspect]
     Active Substance: RITLECITINIB TOSYLATE
     Dosage: 50 MG

REACTIONS (4)
  - Alopecia [Not Recovered/Not Resolved]
  - Seasonal allergy [Unknown]
  - Infectious mononucleosis [Recovering/Resolving]
  - Madarosis [Unknown]
